FAERS Safety Report 18384388 (Version 1)
Quarter: 2020Q4

REPORT INFORMATION
  Report Type: Report from Study
  Country: BR (occurrence: BR)
  Receive Date: 20201015
  Receipt Date: 20201015
  Transmission Date: 20210114
  Serious: Yes (Other)
  Sender: FDA-Public Use
  Company Number: NVSC2020BR274300

PATIENT
  Sex: Male

DRUGS (1)
  1. DIOVAN [Suspect]
     Active Substance: VALSARTAN
     Indication: PRODUCT USED FOR UNKNOWN INDICATION
     Dosage: UNK (LONG TIME AGO)
     Route: 065

REACTIONS (4)
  - Illness [Unknown]
  - Abdominal discomfort [Unknown]
  - Arrhythmia [Unknown]
  - Anaemia [Unknown]
